FAERS Safety Report 15317477 (Version 1)
Quarter: 2018Q3

REPORT INFORMATION
  Report Type: Spontaneous
  Country: FR (occurrence: FR)
  Receive Date: 20180824
  Receipt Date: 20180824
  Transmission Date: 20181010
  Serious: Yes (Other)
  Sender: FDA-Public Use
  Company Number: FR-MERCK KGAA-2054212

PATIENT
  Sex: Female

DRUGS (1)
  1. NOVOTHYROX [Suspect]
     Active Substance: LEVOTHYROXINE SODIUM
     Indication: AUTOIMMUNE THYROIDITIS

REACTIONS (9)
  - Fatigue [None]
  - Intestinal transit time increased [None]
  - Agitation [None]
  - Hyperthyroidism [None]
  - Blood thyroid stimulating hormone decreased [None]
  - Feeling hot [None]
  - Insomnia [None]
  - Weight decreased [None]
  - Maternal exposure during pregnancy [None]
